FAERS Safety Report 8165696-X (Version None)
Quarter: 2012Q1

REPORT INFORMATION
  Report Type: 
  Country: None (occurrence: None)
  Receive Date: 20120227
  Receipt Date: 20110913
  Transmission Date: 20120608
  Serious: No
  Sender: FDA-Public Use
  Company Number: US-MYLANLABS-2011S1019290

PATIENT
  Age: 85 Year
  Sex: Female

DRUGS (6)
  1. COUMADIN [Concomitant]
     Dosage: (TUE, THUR, SAT)
     Route: 048
  2. PEPCID [Concomitant]
     Indication: ULCER
     Route: 048
  3. METOPROLOL TARTRATE [Suspect]
     Indication: ATRIAL FIBRILLATION
     Route: 048
     Dates: start: 20070101
  4. COUMADIN [Concomitant]
     Indication: ATRIAL FIBRILLATION
     Dosage: (M, W, F, SUN)
     Route: 048
  5. METOPROLOL TARTRATE [Suspect]
     Route: 048
     Dates: start: 20070101
  6. PROTONIX [Concomitant]
     Indication: ULCER
     Route: 048

REACTIONS (3)
  - GASTRIC ULCER [None]
  - OESOPHAGITIS [None]
  - DYSPEPSIA [None]
